FAERS Safety Report 5508823-2 (Version None)
Quarter: 2007Q4

REPORT INFORMATION
  Report Type: 
  Country: None (occurrence: None)
  Receive Date: 20071031
  Receipt Date: 20071031
  Transmission Date: 20080405
  Serious: No
  Sender: FDA-Public Use
  Company Number: 200712890BWH

PATIENT
  Age: 63 Year
  Sex: Male
  Weight: 83.9154 kg

DRUGS (2)
  1. NEXAVAR [Suspect]
     Indication: MALIGNANT MELANOMA
     Dosage: 400 MG, QD, ORAL
     Route: 048
  2. TEMODAR [Concomitant]

REACTIONS (3)
  - CELLULITIS [None]
  - PAIN IN EXTREMITY [None]
  - PRURITUS [None]
